FAERS Safety Report 8827235 (Version 1)
Quarter: 2012Q4

REPORT INFORMATION
  Report Type: 
  Country: JP (occurrence: JP)
  Receive Date: 20121008
  Receipt Date: 20121008
  Transmission Date: 20130627
  Serious: Yes (Other)
  Sender: FDA-Public Use
  Company Number: JP-009507513-1206USA02880

PATIENT
  Sex: Male

DRUGS (5)
  1. JANUVIA TABLETS 50MG [Suspect]
     Indication: DIABETES MELLITUS
     Dosage: 50 mg, qd
     Route: 048
     Dates: start: 201106, end: 201203
  2. GLYCORAN [Concomitant]
     Indication: DIABETES MELLITUS
     Dosage: dosage is uncertain during a day
     Route: 048
     Dates: end: 201203
  3. BENCLART [Concomitant]
     Dosage: dosage is uncertain during a day
     Route: 048
     Dates: end: 201203
  4. BLOPRESS [Concomitant]
     Indication: HYPERTENSION
     Dosage: dosage is uncertain during a day
     Route: 048
  5. MANIDIPINE HYDROCHLORIDE [Concomitant]
     Dosage: dosage is uncertain during a day
     Route: 048

REACTIONS (1)
  - Rhabdomyolysis [Recovered/Resolved]
